FAERS Safety Report 26094394 (Version 3)
Quarter: 2025Q4

REPORT INFORMATION
  Report Type: Spontaneous
  Country: JP (occurrence: JP)
  Receive Date: 20251126
  Receipt Date: 20251229
  Transmission Date: 20260118
  Serious: Yes (Other)
  Sender: ELI LILLY AND COMPANY
  Company Number: JP-ELI_LILLY_AND_COMPANY-JP202507015032

PATIENT
  Age: 60 Year
  Sex: Female

DRUGS (5)
  1. OLUMIANT [Suspect]
     Active Substance: BARICITINIB
     Indication: Rheumatoid arthritis
     Dosage: 1 DOSAGE FORM, SINGLE
     Route: 048
     Dates: start: 202506, end: 202506
  2. OLUMIANT [Suspect]
     Active Substance: BARICITINIB
     Dosage: UNK
     Route: 048
     Dates: start: 20251117
  3. BIOFERMIN ANTIDIARRHOIC [Concomitant]
  4. PROGRAF [Concomitant]
     Active Substance: TACROLIMUS
     Dosage: UNK
     Dates: start: 202411
  5. PANTETHINE [Concomitant]
     Active Substance: PANTETHINE
     Dosage: UNK
     Dates: start: 202411

REACTIONS (25)
  - Interstitial lung disease [Unknown]
  - Cough [Not Recovered/Not Resolved]
  - Lacrimation increased [Recovered/Resolved]
  - Rhinorrhoea [Recovered/Resolved]
  - Regurgitation [Recovered/Resolved]
  - Thinking abnormal [Unknown]
  - Posterior capsule opacification [Unknown]
  - Device physical property issue [Unknown]
  - Oral discomfort [Recovering/Resolving]
  - Dental caries [Unknown]
  - Tooth fracture [Unknown]
  - Dyspepsia [Unknown]
  - Blood test abnormal [Unknown]
  - C-reactive protein increased [Recovering/Resolving]
  - Stress [Unknown]
  - Pharyngitis [Recovering/Resolving]
  - Skin discolouration [Unknown]
  - Skin fissures [Unknown]
  - Skin atrophy [Unknown]
  - Blepharitis [Unknown]
  - Herpes zoster [Unknown]
  - Weight decreased [Unknown]
  - Osteoporosis [Unknown]
  - Productive cough [Unknown]
  - Weight increased [Unknown]

NARRATIVE: CASE EVENT DATE: 20250601
